FAERS Safety Report 8193504-X (Version None)
Quarter: 2012Q1

REPORT INFORMATION
  Report Type: 
  Country: None (occurrence: None)
  Receive Date: 20120308
  Receipt Date: 20120228
  Transmission Date: 20120608
  Serious: Yes (Hospitalization)
  Sender: FDA-Public Use
  Company Number: FR-SANOFI-AVENTIS-2012SA013661

PATIENT
  Age: 75 Year
  Sex: Female

DRUGS (4)
  1. FEMARA [Interacting]
     Indication: HORMONE THERAPY
     Route: 048
     Dates: start: 20091222
  2. ROSUVASTATIN CALCIUM [Concomitant]
  3. OLMESARTAN MEDOXOMIL [Concomitant]
  4. PLAVIX [Suspect]
     Route: 048
     Dates: start: 20110601

REACTIONS (1)
  - ARTERIAL THROMBOSIS [None]
